FAERS Safety Report 8510692-3 (Version None)
Quarter: 2012Q3

REPORT INFORMATION
  Report Type: 
  Country: None (occurrence: None)
  Receive Date: 20120709
  Receipt Date: 20120709
  Transmission Date: 20120928
  Serious: No
  Sender: FDA-Public Use
  Company Number: None

PATIENT

DRUGS (2)
  1. HEPARIN SODIUM [Suspect]
     Dosage: INJECTABLE INJECTION MULTI-DOSE VIAL 10 ML
  2. HEPARIN SODIUM [Suspect]
     Dosage: INJECTABLE FOR IV OR SC USE MULTI-DOSE VIAL 10 ML

REACTIONS (5)
  - MEDICATION ERROR [None]
  - INCORRECT DOSE ADMINISTERED [None]
  - CONTUSION [None]
  - CATHETER SITE HAEMORRHAGE [None]
  - COAGULATION TIME PROLONGED [None]
